FAERS Safety Report 5423032-3 (Version None)
Quarter: 2007Q3

REPORT INFORMATION
  Report Type: 
  Country: None (occurrence: None)
  Receive Date: 20070822
  Receipt Date: 20070810
  Transmission Date: 20080115
  Serious: Yes (Hospitalization)
  Sender: FDA-Public Use
  Company Number: FR-PFIZER INC-2007067396

PATIENT
  Age: 68 Year
  Sex: Male

DRUGS (1)
  1. SUTENT [Suspect]
     Indication: RENAL CELL CARCINOMA STAGE UNSPECIFIED

REACTIONS (6)
  - ARTHRALGIA [None]
  - HYPERTENSION [None]
  - LIPASE INCREASED [None]
  - MYALGIA [None]
  - SENSORY DISTURBANCE [None]
  - THROMBOCYTOPENIA [None]
